FAERS Safety Report 11127733 (Version 1)
Quarter: 2015Q2

REPORT INFORMATION
  Report Type: Spontaneous
  Country: US (occurrence: None)
  Receive Date: 20150520
  Receipt Date: 20150520
  Transmission Date: 20150821
  Serious: Yes (Hospitalization)
  Sender: FDA-Public Use
  Company Number: None

PATIENT
  Age: 66 Year
  Sex: Male
  Weight: 68.25 kg

DRUGS (16)
  1. BUSPIRONE HCL [Concomitant]
     Active Substance: BUSPIRONE HYDROCHLORIDE
  2. LEVOTHYROXINE SODIUM. [Concomitant]
     Active Substance: LEVOTHYROXINE SODIUM
  3. CARBOPLATIN. [Suspect]
     Active Substance: CARBOPLATIN
     Indication: METASTASIS
     Dosage: CARBOPLASTIN AUC5?
     Route: 042
     Dates: start: 20150421, end: 20150512
  4. NAB-PACLITAXEL [Suspect]
     Active Substance: PACLITAXEL
     Indication: METASTASIS
     Route: 042
     Dates: start: 20150421, end: 20150512
  5. CARBOPLATIN. [Suspect]
     Active Substance: CARBOPLATIN
     Indication: SQUAMOUS CELL CARCINOMA OF HEAD AND NECK
     Dosage: CARBOPLASTIN AUC5?
     Route: 042
     Dates: start: 20150421, end: 20150512
  6. MIRTAZAPINE. [Concomitant]
     Active Substance: MIRTAZAPINE
  7. VENLAFAXINE HCL [Concomitant]
     Active Substance: VENLAFAXINE HYDROCHLORIDE
  8. BENADRYL [Concomitant]
     Active Substance: DIPHENHYDRAMINE HYDROCHLORIDE
  9. DEXAMETHASONE. [Concomitant]
     Active Substance: DEXAMETHASONE
  10. PROCHLORPERAZINE MALEATE. [Concomitant]
     Active Substance: PROCHLORPERAZINE MALEATE
  11. AMOXICILLIN AND CLAVULANATE POTASSIUM [Concomitant]
     Active Substance: AMOXICILLIN\CLAVULANATE POTASSIUM
  12. CETUXIMAB [Suspect]
     Active Substance: CETUXIMAB
     Route: 042
  13. MELATONIN [Concomitant]
     Active Substance: MELATONIN
  14. NAB-PACLITAXEL [Suspect]
     Active Substance: PACLITAXEL
     Indication: SQUAMOUS CELL CARCINOMA OF HEAD AND NECK
     Route: 042
     Dates: start: 20150421, end: 20150512
  15. ASPIRIN. [Concomitant]
     Active Substance: ASPIRIN
  16. ONDANSETRON HCL [Concomitant]
     Active Substance: ONDANSETRON HYDROCHLORIDE

REACTIONS (8)
  - Food intolerance [None]
  - Tracheal fistula [None]
  - Weight decreased [None]
  - Nausea [None]
  - Failure to thrive [None]
  - Diarrhoea [None]
  - Headache [None]
  - Vomiting [None]

NARRATIVE: CASE EVENT DATE: 20150518
